FAERS Safety Report 5330545-1 (Version None)
Quarter: 2007Q2

REPORT INFORMATION
  Report Type: 
  Country: None (occurrence: None)
  Receive Date: 20070521
  Receipt Date: 20070509
  Transmission Date: 20071010
  Serious: Yes (Hospitalization)
  Sender: FDA-Public Use
  Company Number: US-GENENTECH-241207

PATIENT
  Sex: Female
  Weight: 77.098 kg

DRUGS (7)
  1. BEVACIZUMAB [Suspect]
     Indication: NON-SMALL CELL LUNG CANCER
     Dosage: 760 MG, Q2W
     Route: 042
     Dates: start: 20061019
  2. ALIMTA [Suspect]
     Indication: NON-SMALL CELL LUNG CANCER
     Dosage: 664 MG, Q2W
     Route: 042
     Dates: start: 20061019, end: 20070202
  3. GEMCITABINE HCL [Suspect]
     Indication: NON-SMALL CELL LUNG CANCER
     Dosage: 760 MG, Q2W
     Route: 042
     Dates: start: 20061019, end: 20070202
  4. METAMUCIL [Concomitant]
     Indication: DRUG USE FOR UNKNOWN INDICATION
  5. NORVASC [Concomitant]
     Indication: DRUG USE FOR UNKNOWN INDICATION
     Dosage: 5 MG, QD
  6. XANAX [Concomitant]
     Indication: DRUG USE FOR UNKNOWN INDICATION
     Dosage: 0.25 MG, BID
  7. PRILOSEC [Concomitant]
     Indication: DRUG USE FOR UNKNOWN INDICATION
     Dosage: 20 MG, QD

REACTIONS (1)
  - PNEUMONITIS [None]
